FAERS Safety Report 4876955-8 (Version None)
Quarter: 2006Q1

REPORT INFORMATION
  Report Type: 
  Country: None (occurrence: None)
  Receive Date: 20060110
  Receipt Date: 20051229
  Transmission Date: 20060701
  Serious: Yes (Hospitalization)
  Sender: FDA-Public Use
  Company Number: US-SANOFI-SYNTHELABO-A03200600020

PATIENT
  Sex: Male
  Weight: 74.83 kg

DRUGS (2)
  1. PLAVIX [Suspect]
     Indication: CORONARY ARTERIAL STENT INSERTION
     Route: 048
     Dates: start: 20051220, end: 20051222
  2. FLOVENT [Concomitant]
     Dosage: UNK
     Route: 065

REACTIONS (3)
  - ANGINA UNSTABLE [None]
  - DRUG HYPERSENSITIVITY [None]
  - HYPERSENSITIVITY [None]
